FAERS Safety Report 8344059-8 (Version None)
Quarter: 2012Q2

REPORT INFORMATION
  Report Type: 
  Country: None (occurrence: None)
  Receive Date: 20120504
  Receipt Date: 20120417
  Transmission Date: 20120825
  Serious: Yes (Other)
  Sender: FDA-Public Use
  Company Number: 2012AP001098

PATIENT
  Age: 65 Year
  Sex: Female
  Weight: 90.7194 kg

DRUGS (2)
  1. TEMAZEPAM [Concomitant]
  2. SERTRALINE HYDROCHLORIDE [Suspect]
     Indication: POST-TRAUMATIC STRESS DISORDER
     Dosage: 200 MG, QD
     Dates: end: 20120301

REACTIONS (12)
  - BODY TEMPERATURE INCREASED [None]
  - CHILLS [None]
  - VITAMIN B COMPLEX DEFICIENCY [None]
  - CRYING [None]
  - BINGE EATING [None]
  - FORMICATION [None]
  - ANAEMIA [None]
  - NIGHTMARE [None]
  - ABDOMINAL PAIN UPPER [None]
  - DIZZINESS [None]
  - HYPERHIDROSIS [None]
  - NOCTIPHOBIA [None]
